FAERS Safety Report 19449486 (Version 1)
Quarter: 2021Q2

REPORT INFORMATION
  Report Type: Spontaneous
  Country: US (occurrence: US)
  Receive Date: 20210622
  Receipt Date: 20210622
  Transmission Date: 20210717
  Serious: No
  Sender: FDA-Public Use
  Company Number: US-ASTELLAS-2020US029526

PATIENT
  Age: 75 Year
  Sex: Female

DRUGS (1)
  1. VESICARE [Suspect]
     Active Substance: SOLIFENACIN SUCCINATE
     Indication: VAGINAL DISORDER
     Dosage: UNK UNK, ONCE DAILY
     Route: 065
     Dates: end: 2012

REACTIONS (1)
  - Product use in unapproved indication [Unknown]
